FAERS Safety Report 5018164-8 (Version None)
Quarter: 2006Q2

REPORT INFORMATION
  Report Type: 
  Country: None (occurrence: None)
  Receive Date: 20060605
  Receipt Date: 20060524
  Transmission Date: 20061013
  Serious: Yes (Hospitalization)
  Sender: FDA-Public Use
  Company Number: GB-JNJFOC-20060502695

PATIENT
  Age: 48 Year
  Sex: Female
  Weight: 74 kg

DRUGS (2)
  1. TRAMADOL HYDROCHLORIDE [Suspect]
     Indication: ANALGESIC EFFECT
     Route: 048
  2. METHOTREXATE [Suspect]
     Indication: RHEUMATOID ARTHRITIS
     Route: 048

REACTIONS (4)
  - CHEST DISCOMFORT [None]
  - NAUSEA [None]
  - RASH [None]
  - VOMITING [None]
